FAERS Safety Report 7208295-6 (Version None)
Quarter: 2010Q4

REPORT INFORMATION
  Report Type: 
  Country: None (occurrence: None)
  Receive Date: 20101126
  Receipt Date: 20100820
  Transmission Date: 20110411
  Serious: Yes (Other)
  Sender: FDA-Public Use
  Company Number: 313537

PATIENT
  Sex: Female
  Weight: 104.3 kg

DRUGS (9)
  1. VICTOZA [Suspect]
     Indication: TYPE 2 DIABETES MELLITUS
     Dosage: SUBCUTANEOUS
     Route: 058
  2. AMBIEN [Concomitant]
  3. ASPIRIN [Concomitant]
  4. FLEXERIL /00428402/ (CYCLOBENZAPRINE HYDROCHLORIDE) [Concomitant]
  5. LISINOPRIL + HIDROCLOROTIAZIDA (HYDROCHLOROTHIAZIDE, LISINOPRIL) [Concomitant]
  6. METFORMIN ER (METFORMIN HYDROCHLORIDE) [Concomitant]
  7. PROTONIX [Concomitant]
  8. ERGOCALCIFEROL [Concomitant]
  9. .. [Concomitant]

REACTIONS (2)
  - HEAT OEDEMA [None]
  - PANCREATITIS [None]
